FAERS Safety Report 9758723 (Version 1)
Quarter: 2013Q4

REPORT INFORMATION
  Report Type: Spontaneous
  Country: US (occurrence: None)
  Receive Date: 20131216
  Receipt Date: 20131216
  Transmission Date: 20140711
  Serious: Yes (Hospitalization)
  Sender: FDA-Public Use
  Company Number: 071188

PATIENT
  Sex: Female
  Weight: 42 kg

DRUGS (2)
  1. CIMZIA [Suspect]
     Indication: COLITIS
     Dosage: ( )
  2. REMICADE [Suspect]
     Indication: COLITIS
     Dosage: (LYOPHILISED POWDER INTRAVENOUS (NOT OTHERWISE SPECIFIED) )

REACTIONS (2)
  - Colitis [None]
  - Drug ineffective [None]
